FAERS Safety Report 5697677-X (Version None)
Quarter: 2008Q2

REPORT INFORMATION
  Report Type: 
  Country: None (occurrence: None)
  Receive Date: 20080408
  Receipt Date: 20080328
  Transmission Date: 20081010
  Serious: Yes (Other)
  Sender: FDA-Public Use
  Company Number: A0714946A

PATIENT
  Age: 53 Year
  Sex: Female

DRUGS (2)
  1. LAMICTAL [Suspect]
     Dosage: 75MG PER DAY
     Route: 048
     Dates: start: 20070821, end: 20070901
  2. KLONOPIN [Concomitant]
     Indication: ANXIETY
     Dosage: 1MG PER DAY
     Route: 048
     Dates: start: 20010302

REACTIONS (7)
  - AUTOIMMUNE HEPATITIS [None]
  - BLOOD IRON INCREASED [None]
  - DRUG TOXICITY [None]
  - ENZYME ABNORMALITY [None]
  - MALAISE [None]
  - NAUSEA [None]
  - RASH [None]
